FAERS Safety Report 8591473-1 (Version None)
Quarter: 2012Q3

REPORT INFORMATION
  Report Type: 
  Country: None (occurrence: None)
  Receive Date: 20120803
  Receipt Date: 20120803
  Transmission Date: 20120928
  Serious: No
  Sender: FDA-Public Use
  Company Number: None

PATIENT
  Age: 67 Year
  Sex: Male
  Weight: 108 kg

DRUGS (2)
  1. WARFARIN SODIUM [Suspect]
     Indication: DEEP VEIN THROMBOSIS
     Dosage: 5 MG EVERY DAY PO
     Route: 048
     Dates: start: 20120615, end: 20120619
  2. ENOXAPARIN [Suspect]
     Dosage: 100 MG BID SQ
     Route: 058
     Dates: start: 20120615, end: 20120619

REACTIONS (6)
  - ASTHENIA [None]
  - HAEMOGLOBIN DECREASED [None]
  - INTERNATIONAL NORMALISED RATIO DECREASED [None]
  - ABASIA [None]
  - PROTHROMBIN TIME PROLONGED [None]
  - GASTRIC HAEMORRHAGE [None]
